FAERS Safety Report 24264133 (Version 1)
Quarter: 2024Q3

REPORT INFORMATION
  Report Type: Spontaneous
  Country: US (occurrence: None)
  Receive Date: 20240828
  Receipt Date: 20240828
  Transmission Date: 20241017
  Serious: Yes (Hospitalization)
  Sender: Public
  Company Number: None

PATIENT
  Age: 85 Year
  Sex: Male

DRUGS (1)
  1. LENALIDOMIDE [Suspect]
     Active Substance: LENALIDOMIDE
     Indication: Plasma cell myeloma
     Dosage: OTHER FREQUENCY : QD FOR 21 DAYS THEN 7 DAYS OFF;?DAILY FOR 21 DAYS THEN 7  DAYS OFF??

REACTIONS (3)
  - Loss of consciousness [None]
  - Fall [None]
  - Therapy interrupted [None]
